FAERS Safety Report 18580523 (Version 2)
Quarter: 2020Q4

REPORT INFORMATION
  Report Type: Spontaneous
  Country: US (occurrence: US)
  Receive Date: 20201204
  Receipt Date: 20201209
  Transmission Date: 20210114
  Serious: No
  Sender: FDA-Public Use
  Company Number: US-PFIZER INC-2020475613

PATIENT
  Age: 69 Year
  Sex: Male

DRUGS (2)
  1. INLYTA [Suspect]
     Active Substance: AXITINIB
     Dosage: 5-10 MG, CYCLIC ((5-10 BID (TWICE A DAY)) D1-28 Q (EVERY) 28D)
     Route: 048
  2. SUTENT [Suspect]
     Active Substance: SUNITINIB MALATE
     Dosage: 50 MG, CYCLIC ((50 QD (ONCE A DAY)) D1-28 Q (EVERY) 42D)
     Route: 048

REACTIONS (3)
  - Pain [Unknown]
  - Neoplasm progression [Unknown]
  - Gait disturbance [Unknown]
